FAERS Safety Report 4686217-X (Version None)
Quarter: 2005Q2

REPORT INFORMATION
  Report Type: 
  Country: None (occurrence: None)
  Receive Date: 20050606
  Receipt Date: 20050524
  Transmission Date: 20051028
  Serious: Yes (Other)
  Sender: FDA-Public Use
  Company Number: 2005079273

PATIENT
  Sex: Male
  Weight: 99.3377 kg

DRUGS (13)
  1. CELEBREX [Suspect]
     Indication: ARTHRITIS
     Dosage: 200 MG (200 MG, 1 IN 1 D), ORAL
     Route: 048
  2. VASERETIC [Concomitant]
  3. PRILOSEC [Concomitant]
  4. ELAVIL [Concomitant]
  5. CHONDROITIN/GLUCOSAMINE (CHONDROITIN, GLUCOSAMINE) [Concomitant]
  6. VITAMIN B12 (VITAMIN B12) [Concomitant]
  7. VITAMIN B6 (VITAMIN B6) [Concomitant]
  8. GARLIC (GARLIC) [Concomitant]
  9. MAGNESIUM CITRATE (MAGNESIUM CITRATE) [Concomitant]
  10. CALCIUM CITRATE (CALCIUM CITRATE) [Concomitant]
  11. VTAMIN D (VITAMIN D) [Concomitant]
  12. VITAMIN A (NATURAL) CAP [Concomitant]
  13. FLAXSEED OID (LINSEED OIL) [Concomitant]

REACTIONS (3)
  - CHONDROPATHY [None]
  - HEAD INJURY [None]
  - MUSCLE SPASMS [None]
